FAERS Safety Report 24954962 (Version 1)
Quarter: 2025Q1

REPORT INFORMATION
  Report Type: Spontaneous
  Country: US (occurrence: None)
  Receive Date: 20250211
  Receipt Date: 20250211
  Transmission Date: 20250409
  Serious: Yes (Hospitalization)
  Sender: FDA-CTU
  Company Number: None

PATIENT
  Age: 59 Year
  Sex: Female
  Weight: 67.2 kg

DRUGS (2)
  1. TECHNETIUM TC-99M SULFUR COLLOID [Suspect]
     Active Substance: TECHNETIUM TC-99M SULFUR COLLOID
     Dates: end: 20241213
  2. CISPLATIN [Suspect]
     Active Substance: CISPLATIN

REACTIONS (6)
  - Urinary tract infection [None]
  - SARS-CoV-2 test positive [None]
  - Culture positive [None]
  - Staphylococcal infection [None]
  - Nausea [None]
  - Vomiting [None]

NARRATIVE: CASE EVENT DATE: 20250207
